FAERS Safety Report 6164879-8 (Version None)
Quarter: 2009Q2

REPORT INFORMATION
  Report Type: 
  Country: None (occurrence: None)
  Receive Date: 20090423
  Receipt Date: 20090416
  Transmission Date: 20091009
  Serious: Yes (Hospitalization, Other)
  Sender: FDA-Public Use
  Company Number: BR-ASTRAZENECA-2009UW09749

PATIENT
  Age: 72 Year
  Sex: Female
  Weight: 65 kg

DRUGS (8)
  1. SPLENDIL [Suspect]
     Indication: ANGINA PECTORIS
     Route: 048
     Dates: start: 19970101, end: 20081101
  2. SPLENDIL [Suspect]
     Route: 048
     Dates: start: 20081101, end: 20090301
  3. SPLENDIL [Suspect]
     Dosage: GENERIC FELODIPINE
     Route: 048
     Dates: start: 20090301, end: 20090401
  4. SPLENDIL [Suspect]
     Dosage: REINTRODUCED SPLENDIL
     Route: 048
     Dates: start: 20090401
  5. EUTHYROX [Concomitant]
     Route: 048
     Dates: start: 19940101
  6. ASPIRIN [Concomitant]
     Route: 048
  7. LEXOTAN [Concomitant]
     Route: 048
     Dates: start: 20050101
  8. SERETIDE [Concomitant]
     Route: 055
     Dates: start: 20030101

REACTIONS (6)
  - ANGINA PECTORIS [None]
  - ARTHRALGIA [None]
  - FALL [None]
  - JOINT SWELLING [None]
  - MUSCULOSKELETAL PAIN [None]
  - OSTEOPOROSIS [None]
